FAERS Safety Report 9196155 (Version 1)
Quarter: 2013Q1

REPORT INFORMATION
  Report Type: Spontaneous
  Country: US (occurrence: None)
  Receive Date: 20120709
  Receipt Date: 20120709
  Transmission Date: 20140127
  Serious: No
  Sender: FDA-Public Use
  Company Number: 2012HGS-003676

PATIENT
  Age: 49 Year
  Sex: Female
  Weight: 90.72 kg

DRUGS (1)
  1. BENLYSTA [Suspect]
     Indication: SYSTEMIC LUPUS ERYTHEMATOSUS
     Dosage: 1 IN 28 D, INTRAVENOUS DRIP
     Route: 042
     Dates: start: 20111201

REACTIONS (3)
  - Hypersensitivity [None]
  - Throat tightness [None]
  - Swollen tongue [None]
